FAERS Safety Report 21225128 (Version 1)
Quarter: 2022Q3

REPORT INFORMATION
  Report Type: Spontaneous
  Country: US (occurrence: US)
  Receive Date: 20220817
  Receipt Date: 20220817
  Transmission Date: 20221027
  Serious: No
  Sender: FDA-Public Use
  Company Number: US-OTSUKA-2022_003847

PATIENT
  Age: 91 Year
  Sex: Female
  Weight: 108 kg

DRUGS (6)
  1. ARIPIPRAZOLE [Suspect]
     Active Substance: ARIPIPRAZOLE
     Indication: Depression
     Dosage: 2 MG, QD (CUT IN HALF, EVERY MORNING)
     Route: 065
     Dates: start: 202201
  2. ARIPIPRAZOLE [Suspect]
     Active Substance: ARIPIPRAZOLE
     Indication: Anxiety
  3. ARIPIPRAZOLE [Suspect]
     Active Substance: ARIPIPRAZOLE
     Indication: Emotional disorder
  4. THYROID [Concomitant]
     Active Substance: LEVOTHYROXINE\LIOTHYRONINE
     Indication: Product used for unknown indication
     Dosage: UNK
     Route: 065
  5. LEXAPRO [Concomitant]
     Active Substance: ESCITALOPRAM OXALATE
     Indication: Product used for unknown indication
     Dosage: UNK
     Route: 065
  6. MELATONIN [Concomitant]
     Active Substance: MELATONIN
     Indication: Product used for unknown indication
     Dosage: UNK
     Route: 065

REACTIONS (2)
  - Weight increased [Not Recovered/Not Resolved]
  - Product use in unapproved indication [Unknown]

NARRATIVE: CASE EVENT DATE: 20220101
